FAERS Safety Report 9476166 (Version 1)
Quarter: 2013Q3

REPORT INFORMATION
  Report Type: Spontaneous
  Country: US (occurrence: None)
  Receive Date: 20130823
  Receipt Date: 20130823
  Transmission Date: 20140515
  Serious: Yes (Hospitalization)
  Sender: FDA-Public Use
  Company Number: None

PATIENT
  Age: 43 Year
  Sex: Male

DRUGS (2)
  1. HEPARIN [Suspect]
     Indication: PULMONARY EMBOLISM
     Dosage: 15500 UNITS PER HOUR IV.
     Route: 042
     Dates: start: 20130723, end: 20130805
  2. WARFARIN [Suspect]
     Indication: PULMONARY EMBOLISM
     Route: 048
     Dates: start: 20130728, end: 20130804

REACTIONS (9)
  - Lower gastrointestinal haemorrhage [None]
  - Large intestinal ulcer [None]
  - Large intestinal ulcer [None]
  - Gastrointestinal erosion [None]
  - Hypoperfusion [None]
  - Sepsis [None]
  - Cytomegalovirus gastrointestinal infection [None]
  - Post procedural haematuria [None]
  - Gastric haemorrhage [None]
